FAERS Safety Report 21311922 (Version 2)
Quarter: 2022Q4

REPORT INFORMATION
  Report Type: Spontaneous
  Country: US (occurrence: None)
  Receive Date: 20220909
  Receipt Date: 20221013
  Transmission Date: 20230113
  Serious: Yes (Death)
  Sender: FDA-Public Use
  Company Number: US-ROCHE-3176242

PATIENT
  Sex: Male

DRUGS (8)
  1. ESBRIET [Suspect]
     Active Substance: PIRFENIDONE
     Indication: Idiopathic pulmonary fibrosis
     Route: 048
     Dates: start: 20220108, end: 20220902
  2. LISINOPRIL [Concomitant]
     Active Substance: LISINOPRIL
  3. DEXILANT [Concomitant]
     Active Substance: DEXLANSOPRAZOLE
  4. DILTIAZEM [Concomitant]
     Active Substance: DILTIAZEM
  5. FUROSEMIDE [Concomitant]
     Active Substance: FUROSEMIDE
  6. PROLIA [Concomitant]
     Active Substance: DENOSUMAB
  7. FLECAINIDE [Concomitant]
     Active Substance: FLECAINIDE
  8. TESTOSTERONE [Concomitant]
     Active Substance: TESTOSTERONE

REACTIONS (1)
  - Pulmonary fibrosis [Fatal]

NARRATIVE: CASE EVENT DATE: 20220902
